FAERS Safety Report 5338330-1 (Version None)
Quarter: 2007Q2

REPORT INFORMATION
  Report Type: 
  Country: None (occurrence: None)
  Receive Date: 20070313
  Receipt Date: 20061114
  Transmission Date: 20071010
  Serious: Yes (Hospitalization)
  Sender: FDA-Public Use
  Company Number: CAR-2006-021

PATIENT
  Sex: Female

DRUGS (1)
  1. CARAFATE [Suspect]
     Dosage: 10ML; QID; ORAL 2 DOSES
     Route: 048

REACTIONS (1)
  - NAUSEA [None]
